FAERS Safety Report 15445423 (Version 1)
Quarter: 2018Q3

REPORT INFORMATION
  Report Type: Spontaneous
  Country: US (occurrence: US)
  Receive Date: 20180928
  Receipt Date: 20180928
  Transmission Date: 20181010
  Serious: No
  Sender: FDA-Public Use
  Company Number: US-AMGEN-USASP2018065161

PATIENT
  Age: 82 Year
  Sex: Female

DRUGS (1)
  1. PROLIA [Suspect]
     Active Substance: DENOSUMAB
     Indication: OSTEOPOROSIS POSTMENOPAUSAL
     Dosage: UNK
     Route: 065
     Dates: start: 20150220, end: 20171109

REACTIONS (6)
  - Musculoskeletal stiffness [Unknown]
  - Fatigue [Unknown]
  - Arthralgia [Recovered/Resolved]
  - Swelling [Unknown]
  - Scoliosis [Unknown]
  - Refusal of treatment by patient [Unknown]
